FAERS Safety Report 25973213 (Version 1)
Quarter: 2025Q4

REPORT INFORMATION
  Report Type: Spontaneous
  Country: EU (occurrence: EU)
  Receive Date: 20251029
  Receipt Date: 20251029
  Transmission Date: 20260118
  Serious: Yes (Hospitalization, Other)
  Sender: Kenvue
  Company Number: EU-SANDOZ-SDZ2025DE075271

PATIENT

DRUGS (9)
  1. IBUPROFEN [Suspect]
     Active Substance: IBUPROFEN
     Indication: Product used for unknown indication
     Dosage: 600 MILLIGRAM, ONCE IN A WEEK (600 MG, QW (1 DAY PER WEEK) START DATE: 17-JUL-2025)
     Route: 065
     Dates: start: 20250717
  2. METHOTREXATE [Suspect]
     Active Substance: METHOTREXATE
     Indication: Product used for unknown indication
     Dosage: 10 MILLIGRAM, ONCE IN A WEEK (10 MG, QW 1-0-1)
     Route: 058
     Dates: start: 20250115
  3. BISOPROLOL [Suspect]
     Active Substance: BISOPROLOL
     Indication: Product used for unknown indication
     Dosage: 10 MILLIGRAM, ONCE A DAY, 5 MG, BID (1-0-1)
     Route: 065
  4. COSENTYX [Suspect]
     Active Substance: SECUKINUMAB
     Indication: Psoriatic arthropathy
     Dosage: 300 MILLIGRAM EVERY 4 WEEKS (300 MG, Q4W)
     Route: 065
     Dates: start: 20220718
  5. BISOPROLOL [Concomitant]
     Active Substance: BISOPROLOL
     Indication: Product used for unknown indication
     Dosage: 10 MILLIGRAM, ONCE A DAY, 5 MG, BID
     Route: 065
  6. CANDESARTAN [Concomitant]
     Active Substance: CANDESARTAN
     Indication: Product used for unknown indication
     Dosage: 32 MILLIGRAM, ONCE A DAY (16 MG, BID)
     Route: 065
  7. CANDESARTAN [Concomitant]
     Active Substance: CANDESARTAN
     Dosage: 32 MILLIGRAM, ONCE A DAY, 16 MG, BID (1-0-1)
     Route: 065
  8. OZEMPIC [Concomitant]
     Active Substance: SEMAGLUTIDE
     Indication: Product used for unknown indication
     Dosage: 0.5 MILLIGRAM, ONCE IN A WEEK (0.5 MG, QW (1X WEEKLY)
     Route: 058
  9. IBUPROFEN [Concomitant]
     Active Substance: IBUPROFEN
     Indication: Product used for unknown indication
     Dosage: 600 MG, QW (1 DAY PER WEEK)
     Route: 065
     Dates: start: 20250717

REACTIONS (4)
  - Infective exacerbation of asthma [Recovered/Resolved]
  - Asthma [Recovered/Resolved]
  - Dyspnoea exertional [Unknown]
  - Infection [Unknown]

NARRATIVE: CASE EVENT DATE: 20250314
